FAERS Safety Report 6754151-7 (Version None)
Quarter: 2010Q2

REPORT INFORMATION
  Report Type: 
  Country: None (occurrence: None)
  Receive Date: 20100603
  Receipt Date: 20100519
  Transmission Date: 20101027
  Serious: Yes (Hospitalization)
  Sender: FDA-Public Use
  Company Number: PHEH2010US03211

PATIENT
  Sex: Female
  Weight: 41 kg

DRUGS (4)
  1. EXJADE [Suspect]
     Indication: MYELODYSPLASTIC SYNDROME
     Dosage: 500 MG, BID
     Route: 048
     Dates: start: 20090511, end: 20100217
  2. EXJADE [Suspect]
     Indication: IRON OVERLOAD
     Dosage: 500 MG, BID
     Route: 048
     Dates: start: 20090427, end: 20100326
  3. ARANESP [Concomitant]
     Indication: ANAEMIA
     Dosage: 200 MG, UNK
     Dates: start: 20080715
  4. NEUPOGEN [Concomitant]
     Dosage: UNK
     Dates: start: 20080715

REACTIONS (2)
  - GASTROINTESTINAL HAEMORRHAGE [None]
  - LUNG INFECTION [None]
